FAERS Safety Report 5242312-8 (Version None)
Quarter: 2007Q1

REPORT INFORMATION
  Report Type: 
  Country: None (occurrence: None)
  Receive Date: 20070216
  Receipt Date: 20070216
  Transmission Date: 20070707
  Serious: Yes (Hospitalization)
  Sender: FDA-Public Use
  Company Number: None

PATIENT
  Age: 67 Year
  Sex: Male

DRUGS (9)
  1. CARBOPLATIN [Suspect]
     Indication: NEOPLASM MALIGNANT
     Dosage: 350ML
     Dates: start: 20061121
  2. GEMCITABINE [Suspect]
     Indication: NEOPLASM MALIGNANT
     Dosage: 2000MG
     Dates: start: 20061121
  3. FLUCONAZOLE [Concomitant]
  4. OXYCODONE HCL [Concomitant]
  5. LISINOPRIL [Concomitant]
  6. GLYBURIDE [Concomitant]
  7. FUROSEMIDE [Concomitant]
  8. EPOETIN [Concomitant]
  9. GABAPENTIN [Concomitant]

REACTIONS (1)
  - NEUTROPENIA [None]
